FAERS Safety Report 5511495-4 (Version None)
Quarter: 2007Q4

REPORT INFORMATION
  Report Type: 
  Country: None (occurrence: None)
  Receive Date: 20071109
  Receipt Date: 20071107
  Transmission Date: 20080405
  Serious: Yes (Hospitalization)
  Sender: FDA-Public Use
  Company Number: A0693076A

PATIENT
  Age: 51 Year
  Sex: Female

DRUGS (2)
  1. MELPHALAN [Suspect]
     Indication: MULTIPLE MYELOMA
     Route: 042
     Dates: start: 20070821, end: 20070822
  2. BLINDED TRIAL MEDICATION [Suspect]
     Route: 042
     Dates: start: 20070821, end: 20070822

REACTIONS (2)
  - ATRIAL FIBRILLATION [None]
  - FATIGUE [None]
